FAERS Safety Report 6530949-5 (Version None)
Quarter: 2010Q1

REPORT INFORMATION
  Report Type: 
  Country: None (occurrence: None)
  Receive Date: 20100108
  Receipt Date: 20090706
  Transmission Date: 20100710
  Serious: No
  Sender: FDA-Public Use
  Company Number: A0795500A

PATIENT
  Sex: Male

DRUGS (5)
  1. LOVAZA [Suspect]
     Route: 048
  2. CO Q 10 [Concomitant]
  3. CRESTOR [Concomitant]
  4. M.V.I. [Concomitant]
  5. VITAMIN D [Concomitant]

REACTIONS (4)
  - ARTHRALGIA [None]
  - ARTHROPATHY [None]
  - FEELING HOT [None]
  - JOINT SWELLING [None]
